FAERS Safety Report 14999677 (Version 2)
Quarter: 2018Q2

REPORT INFORMATION
  Report Type: Spontaneous
  Country: US (occurrence: US)
  Receive Date: 20180612
  Receipt Date: 20180619
  Transmission Date: 20180711
  Serious: No
  Sender: FDA-Public Use
  Company Number: PHEH2018US022874

PATIENT
  Sex: Male

DRUGS (2)
  1. SIMBRINZA [Suspect]
     Active Substance: BRIMONIDINE TARTRATE\BRINZOLAMIDE
     Indication: OPEN ANGLE GLAUCOMA
     Dosage: UNK UNK, BID
     Route: 047
  2. LUMIGAN [Suspect]
     Active Substance: BIMATOPROST
     Indication: OPEN ANGLE GLAUCOMA
     Dosage: UNK UNK, QD (BEFORE BED)
     Route: 065

REACTIONS (2)
  - Somnolence [Unknown]
  - Dysgeusia [Unknown]
